FAERS Safety Report 12076012 (Version 2)
Quarter: 2016Q2

REPORT INFORMATION
  Report Type: Spontaneous
  Country: AU (occurrence: AU)
  Receive Date: 20160215
  Receipt Date: 20160627
  Transmission Date: 20160815
  Serious: Yes (Hospitalization, Other)
  Sender: FDA-Public Use
  Company Number: AU-BRISTOL-MYERS SQUIBB COMPANY-BMS-2016-009117

PATIENT
  Age: 53 Year
  Sex: Male

DRUGS (4)
  1. OPDIVO [Suspect]
     Active Substance: NIVOLUMAB
     Dosage: 290 MG, UNK
     Route: 065
     Dates: start: 20150904
  2. OPDIVO [Suspect]
     Active Substance: NIVOLUMAB
     Dosage: 300 MG, UNK
     Route: 065
     Dates: start: 20150821
  3. OPDIVO [Suspect]
     Active Substance: NIVOLUMAB
     Indication: SQUAMOUS CELL CARCINOMA OF LUNG
     Dosage: 290 MG, UNK
     Route: 065
     Dates: start: 20150806
  4. CLOZAPINE. [Suspect]
     Active Substance: CLOZAPINE
     Indication: SCHIZOPHRENIA
     Dosage: UNK
     Route: 065

REACTIONS (8)
  - Bladder diverticulum [Unknown]
  - Urinary retention [Unknown]
  - Cystitis noninfective [Unknown]
  - Gastric dilatation [Unknown]
  - Bladder catheterisation [Unknown]
  - Constipation [Unknown]
  - Dysuria [Unknown]
  - Urinary tract obstruction [Unknown]

NARRATIVE: CASE EVENT DATE: 20150910
